FAERS Safety Report 14121635 (Version 1)
Quarter: 2017Q4

REPORT INFORMATION
  Report Type: Spontaneous
  Country: SE (occurrence: SE)
  Receive Date: 20171024
  Receipt Date: 20171024
  Transmission Date: 20180321
  Serious: Yes (Hospitalization)
  Sender: FDA-Public Use
  Company Number: SE-TEVA-816819ACC

PATIENT
  Age: 38 Year
  Sex: Female

DRUGS (4)
  1. STESOLID [Suspect]
     Active Substance: DIAZEPAM
     Dates: start: 20170930, end: 20170930
  2. THERALEN [Suspect]
     Active Substance: TRIMEPRAZINE
     Dates: start: 20170930, end: 20170930
  3. SOBRIL [Suspect]
     Active Substance: OXAZEPAM
     Dates: start: 20170930, end: 20170930
  4. LERGIGAN (PROMETHAZINE HYDROCHLORIDE) [Suspect]
     Active Substance: PROMETHAZINE HYDROCHLORIDE
     Dates: start: 20170930, end: 20170930

REACTIONS (3)
  - Toxicity to various agents [Recovered/Resolved]
  - Suicide attempt [Recovered/Resolved]
  - Depressed level of consciousness [Recovered/Resolved]

NARRATIVE: CASE EVENT DATE: 20170930
